FAERS Safety Report 8240873-8 (Version None)
Quarter: 2012Q1

REPORT INFORMATION
  Report Type: 
  Country: None (occurrence: None)
  Receive Date: 20120328
  Receipt Date: 20120319
  Transmission Date: 20120608
  Serious: Yes (Other)
  Sender: FDA-Public Use
  Company Number: US-BAYER-2011-121937

PATIENT
  Age: 29 Year
  Sex: Female
  Weight: 90.703 kg

DRUGS (1)
  1. MIRENA [Suspect]
     Indication: CONTRACEPTION
     Dosage: 20 MCG/24HR, CONT
     Route: 015
     Dates: start: 20090721

REACTIONS (6)
  - ABDOMINAL PAIN [None]
  - NEPHROLITHIASIS [None]
  - PREGNANCY [None]
  - POST PROCEDURAL HAEMORRHAGE [None]
  - DEVICE DISLOCATION [None]
  - MENSTRUATION DELAYED [None]
